FAERS Safety Report 7828774-8 (Version None)
Quarter: 2011Q4

REPORT INFORMATION
  Report Type: 
  Country: None (occurrence: None)
  Receive Date: 20111020
  Receipt Date: 20110725
  Transmission Date: 20120403
  Serious: No
  Sender: FDA-Public Use
  Company Number: US-MYLANLABS-2011S1014242

PATIENT
  Age: 79 Year
  Sex: Male

DRUGS (5)
  1. DRONEDARONE HCL [Suspect]
     Indication: ATRIAL FIBRILLATION
     Route: 048
     Dates: start: 20110412
  2. LISINOPRIL AND HYDROCHLOROTHIAZIDE [Suspect]
     Indication: BLOOD PRESSURE
     Dates: end: 20110617
  3. TERAZOSIN HCL [Concomitant]
     Dates: start: 19920101
  4. LISINOPRIL AND HYDROCHLOROTHIAZIDE [Suspect]
     Dates: end: 20110617
  5. CARVEDILOL [Suspect]
     Indication: ATRIAL FIBRILLATION
     Dates: start: 20110401

REACTIONS (5)
  - PRURITUS [None]
  - PHOTOSENSITIVITY REACTION [None]
  - SKIN BURNING SENSATION [None]
  - SKIN DISORDER [None]
  - DIZZINESS [None]
